FAERS Safety Report 21629195 (Version 1)
Quarter: 2022Q4

REPORT INFORMATION
  Report Type: Spontaneous
  Country: GB (occurrence: GB)
  Receive Date: 20221122
  Receipt Date: 20221122
  Transmission Date: 20230113
  Serious: Yes (Other)
  Sender: FDA-Public Use
  Company Number: None

PATIENT
  Age: 86 Year
  Sex: Male
  Weight: 66 kg

DRUGS (29)
  1. CHLORAMPHENICOL SODIUM SUCCINATE [Suspect]
     Active Substance: CHLORAMPHENICOL SODIUM SUCCINATE
     Dosage: UNK
     Dates: start: 20221108
  2. HYDROCORTISONE SODIUM SUCCINATE [Suspect]
     Active Substance: HYDROCORTISONE SODIUM SUCCINATE
     Dosage: UNK
     Dates: start: 20221108
  3. SULFUR [Suspect]
     Active Substance: SULFUR
     Dosage: UNK
     Dates: start: 20221108
  4. NICOTINIC ACID [Suspect]
     Active Substance: NIACIN
     Dosage: UNK
     Dates: start: 20221108
  5. ALLANTOIN [Suspect]
     Active Substance: ALLANTOIN
     Dosage: UNK
     Dates: start: 20221108
  6. APIXABAN [Concomitant]
     Active Substance: APIXABAN
     Dosage: 1 DF, 2X/DAY
     Dates: start: 20150810
  7. BISOPROLOL [Concomitant]
     Active Substance: BISOPROLOL
     Dosage: 1 DF, 1X/DAY
     Dates: start: 20160211, end: 20221101
  8. CEPHALEXIN [Concomitant]
     Active Substance: CEPHALEXIN
     Dosage: 1 DF, 1X/DAY
     Dates: start: 20030415, end: 20221101
  9. CELECOXIB [Concomitant]
     Active Substance: CELECOXIB
     Dosage: 1 DF, 2X/DAY
     Dates: start: 20010205, end: 20221101
  10. CO-DYDRAMOL [Concomitant]
     Active Substance: ACETAMINOPHEN\DIHYDROCODEINE
     Dosage: 2 DF
     Dates: start: 19970127, end: 20221101
  11. MODERNA COVID-19 VACCINE, BIVALENT (ORIGINAL AND OMICRON BA.4/BA.5) [Concomitant]
     Dosage: 0.5 ML, SINGLE
     Route: 030
     Dates: start: 20220908, end: 20220908
  12. CYTOTEC [Concomitant]
     Active Substance: MISOPROSTOL
     Dosage: 1 DF, 2X/DAY
     Dates: start: 19990226, end: 20221101
  13. DIPROBASE [PARAFFIN, LIQUID;WHITE SOFT PARAFFIN] [Concomitant]
     Dosage: UNK
     Dates: start: 20100526, end: 20221101
  14. DOCUSATE SODIUM [Concomitant]
     Active Substance: DOCUSATE SODIUM
     Dosage: UNK
     Dates: start: 20211018
  15. DOXYCYCLINE [Concomitant]
     Active Substance: DOXYCYCLINE
     Dosage: UNK
     Dates: start: 20221005, end: 20221006
  16. FINASTERIDE [Concomitant]
     Active Substance: FINASTERIDE
     Dosage: 1 DF, 1X/DAY
     Dates: start: 20191018, end: 20221101
  17. FUROSEMIDE [Concomitant]
     Active Substance: FUROSEMIDE
     Dosage: 1 DF, 1X/DAY
     Dates: start: 20220822, end: 20221101
  18. NITROGLYCERIN [Concomitant]
     Active Substance: NITROGLYCERIN
     Dosage: UNK
     Dates: start: 20071009, end: 20221101
  19. HYPROMELLOSES [Concomitant]
     Active Substance: HYPROMELLOSES
     Dosage: UNK, AS NEEDED
     Dates: start: 20220425
  20. LANSOPRAZOLE [Concomitant]
     Active Substance: LANSOPRAZOLE
     Dosage: 1 DF, 1X/DAY
     Dates: start: 20071219, end: 20221101
  21. POLYETHYLENE GLYCOL 3350\POTASSIUM CHLORIDE\SODIUM BICARBONATE\SODIUM [Concomitant]
     Active Substance: POLYETHYLENE GLYCOL 3350\POTASSIUM CHLORIDE\SODIUM BICARBONATE\SODIUM CHLORIDE
     Indication: Constipation
     Dosage: UNK, AS NEEDED
     Dates: start: 20220111, end: 20221101
  22. POLYETHYLENE GLYCOLS [Concomitant]
     Active Substance: POLYETHYLENE GLYCOLS
     Dosage: 1 DF, 1X/DAY
     Dates: start: 20091230, end: 20221101
  23. MIRTAZAPINE [Concomitant]
     Active Substance: MIRTAZAPINE
     Dosage: 1 DF, 1X/DAY
     Dates: start: 20220711, end: 20221101
  24. OXYTETRACYCLINE [Concomitant]
     Active Substance: OXYTETRACYCLINE
     Dosage: 1 DF, 2X/DAY
     Dates: start: 19951204, end: 20221101
  25. ACETAMINOPHEN [Concomitant]
     Active Substance: ACETAMINOPHEN
     Dosage: UNK
     Dates: start: 20200220
  26. SIMVASTATIN [Concomitant]
     Active Substance: SIMVASTATIN
     Dosage: UNK
     Dates: start: 20050114, end: 20221101
  27. TAMSULOSIN HYDROCHLORIDE [Concomitant]
     Active Substance: TAMSULOSIN HYDROCHLORIDE
     Dosage: 1 DF, 1X/DAY
     Dates: start: 19991222, end: 20221101
  28. TEMAZEPAM [Concomitant]
     Active Substance: TEMAZEPAM
     Dosage: 1 DF, 1X/DAY
     Dates: start: 19951229, end: 20221101
  29. ZEROBASE [PARAFFIN, LIQUID] [Concomitant]
     Dosage: UNK
     Dates: start: 20200220

REACTIONS (1)
  - Drug intolerance [Recovered/Resolved]

NARRATIVE: CASE EVENT DATE: 20221108
